FAERS Safety Report 24819395 (Version 2)
Quarter: 2025Q1

REPORT INFORMATION
  Report Type: Spontaneous
  Country: JP (occurrence: JP)
  Receive Date: 20250108
  Receipt Date: 20250319
  Transmission Date: 20250408
  Serious: Yes (Life-Threatening, Hospitalization, Other)
  Sender: PFIZER
  Company Number: JP-PFIZER INC-PV202500002005

PATIENT
  Age: 86 Year
  Sex: Female
  Weight: 48 kg

DRUGS (20)
  1. METRONIDAZOLE [Suspect]
     Active Substance: METRONIDAZOLE
     Indication: Pseudomembranous colitis
     Dosage: 500 MG, 1X/DAY
     Route: 042
     Dates: start: 20241212, end: 20241213
  2. AMLODIPINE [Concomitant]
     Active Substance: AMLODIPINE BESYLATE
  3. ASPIRIN [Concomitant]
     Active Substance: ASPIRIN
  4. WARFARIN [Concomitant]
     Active Substance: WARFARIN
  5. MEMANTINE HYDROCHLORIDE [Concomitant]
     Active Substance: MEMANTINE HYDROCHLORIDE
  6. LEVOTHYROXINE [Concomitant]
     Active Substance: LEVOTHYROXINE
  7. POLAPREZINC [Concomitant]
     Active Substance: POLAPREZINC
  8. FOLIC ACID [Concomitant]
     Active Substance: FOLIC ACID
  9. ALFACALCIDOL [Concomitant]
     Active Substance: ALFACALCIDOL
  10. HICEE [ASCORBIC ACID] [Concomitant]
  11. VITAMEDIN [BENFOTIAMINE;CYANOCOBALAMIN;PYRIDOXINE HYDROCHLORIDE] [Concomitant]
  12. PREDONINE [Concomitant]
     Active Substance: PREDNISOLONE
  13. MINODRONIC ACID [Concomitant]
     Active Substance: MINODRONIC ACID
  14. RABEPRAZOLE SODIUM [Concomitant]
     Active Substance: RABEPRAZOLE SODIUM
  15. ALLYDONE [Concomitant]
  16. LINZESS [Concomitant]
     Active Substance: LINACLOTIDE
  17. SODIUM PICOSULFATE [Concomitant]
     Active Substance: SODIUM PICOSULFATE
  18. INSULIN GLARGINE BS LILLY [Concomitant]
  19. CALCIUM CHLORIDE\MAGNESIUM CHLORIDE\POTASSIUM CHLORIDE\SODIUM ACETATE\ [Concomitant]
     Active Substance: CALCIUM CHLORIDE\MAGNESIUM CHLORIDE\POTASSIUM CHLORIDE\SODIUM ACETATE\SODIUM CHLORIDE
  20. NEOLAMIN 3B [HYDROXOCOBALAMIN ACETATE;PYRIDOXINE HYDROCHLORIDE;THIAMIN [Concomitant]

REACTIONS (3)
  - Pancreatitis [Recovered/Resolved]
  - Altered state of consciousness [Recovered/Resolved]
  - Off label use [Unknown]

NARRATIVE: CASE EVENT DATE: 20241212
